FAERS Safety Report 19859069 (Version 1)
Quarter: 2021Q3

REPORT INFORMATION
  Report Type: Spontaneous
  Country: US (occurrence: US)
  Receive Date: 20210920
  Receipt Date: 20210920
  Transmission Date: 20211014
  Serious: No
  Sender: FDA-Public Use
  Company Number: None

PATIENT
  Sex: Female

DRUGS (1)
  1. STIVARGA [Suspect]
     Active Substance: REGORAFENIB
     Indication: COLON CANCER
     Dosage: ?          OTHER FREQUENCY:EVERY 21DAYS 7 OFF;?
     Route: 048
     Dates: start: 20210816, end: 20210816

REACTIONS (1)
  - Adverse drug reaction [None]
